FAERS Safety Report 25528875 (Version 1)
Quarter: 2025Q3

REPORT INFORMATION
  Report Type: Spontaneous
  Country: EU (occurrence: EU)
  Receive Date: 20250708
  Receipt Date: 20250708
  Transmission Date: 20251021
  Serious: Yes (Other)
  Sender: MYLAN
  Company Number: EU-MYLANLABS-2025M1055923

PATIENT
  Age: 49 Year
  Sex: Female

DRUGS (76)
  1. DOXORUBICIN [Suspect]
     Active Substance: DOXORUBICIN
     Indication: HER2 positive breast cancer
  2. DOXORUBICIN [Suspect]
     Active Substance: DOXORUBICIN
     Indication: Invasive breast carcinoma
     Route: 065
  3. DOXORUBICIN [Suspect]
     Active Substance: DOXORUBICIN
     Route: 065
  4. DOXORUBICIN [Suspect]
     Active Substance: DOXORUBICIN
  5. CARBOPLATIN [Suspect]
     Active Substance: CARBOPLATIN
     Indication: HER2 positive breast cancer
     Route: 065
  6. CARBOPLATIN [Suspect]
     Active Substance: CARBOPLATIN
     Indication: Invasive breast carcinoma
  7. CARBOPLATIN [Suspect]
     Active Substance: CARBOPLATIN
  8. CARBOPLATIN [Suspect]
     Active Substance: CARBOPLATIN
     Route: 065
  9. CARBOPLATIN [Suspect]
     Active Substance: CARBOPLATIN
     Route: 065
  10. CARBOPLATIN [Suspect]
     Active Substance: CARBOPLATIN
  11. CARBOPLATIN [Suspect]
     Active Substance: CARBOPLATIN
  12. CARBOPLATIN [Suspect]
     Active Substance: CARBOPLATIN
     Route: 065
  13. CARBOPLATIN [Suspect]
     Active Substance: CARBOPLATIN
  14. CARBOPLATIN [Suspect]
     Active Substance: CARBOPLATIN
  15. CARBOPLATIN [Suspect]
     Active Substance: CARBOPLATIN
     Route: 065
  16. CARBOPLATIN [Suspect]
     Active Substance: CARBOPLATIN
     Route: 065
  17. CARBOPLATIN [Suspect]
     Active Substance: CARBOPLATIN
  18. CARBOPLATIN [Suspect]
     Active Substance: CARBOPLATIN
  19. CARBOPLATIN [Suspect]
     Active Substance: CARBOPLATIN
     Route: 065
  20. CARBOPLATIN [Suspect]
     Active Substance: CARBOPLATIN
     Route: 065
  21. PACLITAXEL [Suspect]
     Active Substance: PACLITAXEL
     Indication: HER2 positive breast cancer
  22. PACLITAXEL [Suspect]
     Active Substance: PACLITAXEL
     Indication: Invasive breast carcinoma
  23. PACLITAXEL [Suspect]
     Active Substance: PACLITAXEL
     Route: 065
  24. PACLITAXEL [Suspect]
     Active Substance: PACLITAXEL
     Route: 065
  25. PACLITAXEL [Suspect]
     Active Substance: PACLITAXEL
  26. PACLITAXEL [Suspect]
     Active Substance: PACLITAXEL
  27. PACLITAXEL [Suspect]
     Active Substance: PACLITAXEL
     Route: 065
  28. PACLITAXEL [Suspect]
     Active Substance: PACLITAXEL
     Route: 065
  29. PACLITAXEL [Suspect]
     Active Substance: PACLITAXEL
  30. PACLITAXEL [Suspect]
     Active Substance: PACLITAXEL
     Route: 065
  31. PACLITAXEL [Suspect]
     Active Substance: PACLITAXEL
  32. PACLITAXEL [Suspect]
     Active Substance: PACLITAXEL
     Route: 065
  33. METOCLOPRAMIDE [Suspect]
     Active Substance: METOCLOPRAMIDE
     Indication: Premedication
  34. METOCLOPRAMIDE [Suspect]
     Active Substance: METOCLOPRAMIDE
     Route: 065
  35. METOCLOPRAMIDE [Suspect]
     Active Substance: METOCLOPRAMIDE
     Route: 065
  36. METOCLOPRAMIDE [Suspect]
     Active Substance: METOCLOPRAMIDE
  37. ONDANSETRON [Suspect]
     Active Substance: ONDANSETRON
     Indication: Premedication
  38. ONDANSETRON [Suspect]
     Active Substance: ONDANSETRON
     Route: 065
  39. ONDANSETRON [Suspect]
     Active Substance: ONDANSETRON
     Route: 065
  40. ONDANSETRON [Suspect]
     Active Substance: ONDANSETRON
  41. PREDNISOLONE [Suspect]
     Active Substance: PREDNISOLONE
     Indication: Premedication
  42. PREDNISOLONE [Suspect]
     Active Substance: PREDNISOLONE
     Route: 065
  43. PREDNISOLONE [Suspect]
     Active Substance: PREDNISOLONE
     Route: 065
  44. PREDNISOLONE [Suspect]
     Active Substance: PREDNISOLONE
  45. EPIRUBICIN [Suspect]
     Active Substance: EPIRUBICIN
     Indication: HER2 positive breast cancer
  46. EPIRUBICIN [Suspect]
     Active Substance: EPIRUBICIN
     Indication: Invasive breast carcinoma
     Route: 065
  47. EPIRUBICIN [Suspect]
     Active Substance: EPIRUBICIN
     Route: 065
  48. EPIRUBICIN [Suspect]
     Active Substance: EPIRUBICIN
  49. HERCEPTIN [Suspect]
     Active Substance: TRASTUZUMAB
     Indication: HER2 positive breast cancer
  50. HERCEPTIN [Suspect]
     Active Substance: TRASTUZUMAB
     Indication: Invasive breast carcinoma
  51. HERCEPTIN [Suspect]
     Active Substance: TRASTUZUMAB
     Route: 065
  52. HERCEPTIN [Suspect]
     Active Substance: TRASTUZUMAB
     Route: 065
  53. HERCEPTIN [Suspect]
     Active Substance: TRASTUZUMAB
  54. HERCEPTIN [Suspect]
     Active Substance: TRASTUZUMAB
  55. HERCEPTIN [Suspect]
     Active Substance: TRASTUZUMAB
     Route: 065
  56. HERCEPTIN [Suspect]
     Active Substance: TRASTUZUMAB
     Route: 065
  57. HALAVEN [Suspect]
     Active Substance: ERIBULIN MESYLATE
     Indication: HER2 positive breast cancer
  58. HALAVEN [Suspect]
     Active Substance: ERIBULIN MESYLATE
     Indication: Invasive breast carcinoma
  59. HALAVEN [Suspect]
     Active Substance: ERIBULIN MESYLATE
     Route: 065
  60. HALAVEN [Suspect]
     Active Substance: ERIBULIN MESYLATE
     Route: 065
  61. HALAVEN [Suspect]
     Active Substance: ERIBULIN MESYLATE
  62. HALAVEN [Suspect]
     Active Substance: ERIBULIN MESYLATE
  63. HALAVEN [Suspect]
     Active Substance: ERIBULIN MESYLATE
     Route: 065
  64. HALAVEN [Suspect]
     Active Substance: ERIBULIN MESYLATE
     Route: 065
  65. OLAPARIB [Suspect]
     Active Substance: OLAPARIB
     Indication: HER2 positive breast cancer
     Dosage: 600 MILLIGRAM, QD
  66. OLAPARIB [Suspect]
     Active Substance: OLAPARIB
     Indication: Invasive breast carcinoma
     Dosage: 600 MILLIGRAM, QD
     Route: 065
  67. OLAPARIB [Suspect]
     Active Substance: OLAPARIB
     Dosage: 600 MILLIGRAM, QD
     Route: 065
  68. OLAPARIB [Suspect]
     Active Substance: OLAPARIB
     Dosage: 600 MILLIGRAM, QD
  69. CYCLOPHOSPHAMIDE [Suspect]
     Active Substance: CYCLOPHOSPHAMIDE
     Indication: HER2 positive breast cancer
  70. CYCLOPHOSPHAMIDE [Suspect]
     Active Substance: CYCLOPHOSPHAMIDE
     Indication: Invasive breast carcinoma
     Route: 065
  71. CYCLOPHOSPHAMIDE [Suspect]
     Active Substance: CYCLOPHOSPHAMIDE
     Route: 065
  72. CYCLOPHOSPHAMIDE [Suspect]
     Active Substance: CYCLOPHOSPHAMIDE
  73. DOCETAXEL [Concomitant]
     Active Substance: DOCETAXEL
     Indication: HER2 positive breast cancer
  74. DOCETAXEL [Concomitant]
     Active Substance: DOCETAXEL
     Indication: Invasive breast carcinoma
     Route: 065
  75. DOCETAXEL [Concomitant]
     Active Substance: DOCETAXEL
     Route: 065
  76. DOCETAXEL [Concomitant]
     Active Substance: DOCETAXEL

REACTIONS (6)
  - Haematotoxicity [Unknown]
  - Drug ineffective [Unknown]
  - Disease progression [Unknown]
  - Type IV hypersensitivity reaction [Recovered/Resolved]
  - Cross sensitivity reaction [Unknown]
  - Maternal exposure during pregnancy [Recovered/Resolved]

NARRATIVE: CASE EVENT DATE: 20230601
